FAERS Safety Report 14612421 (Version 4)
Quarter: 2019Q4

REPORT INFORMATION
  Report Type: Spontaneous
  Country: NL (occurrence: NL)
  Receive Date: 20180308
  Receipt Date: 20191017
  Transmission Date: 20200122
  Serious: Yes (Life-Threatening, Hospitalization)
  Sender: FDA-Public Use
  Company Number: NL-AUROBINDO-AUR-APL-2018-011921

PATIENT
  Age: 48 Year
  Sex: Female

DRUGS (5)
  1. OLANZAPINE 10MG [Suspect]
     Active Substance: OLANZAPINE
     Indication: PSYCHOTIC DISORDER
     Dosage: 10 MG
     Route: 065
  2. OLANZAPINE 10MG [Suspect]
     Active Substance: OLANZAPINE
     Dosage: 10 MG
     Route: 050
  3. OXAZEPAM. [Concomitant]
     Active Substance: OXAZEPAM
     Dosage: 1 DOSAGE FORM
     Route: 050
  4. OXAZEPAM. [Concomitant]
     Active Substance: OXAZEPAM
     Dosage: 1 DOSAGE FORM
  5. OLANZAPINE 10MG [Suspect]
     Active Substance: OLANZAPINE
     Indication: PSYCHOTIC DISORDER
     Dosage: 10 MILLIGRAM
     Route: 065

REACTIONS (1)
  - Arrhythmia [Not Recovered/Not Resolved]

NARRATIVE: CASE EVENT DATE: 201708
